FAERS Safety Report 20571284 (Version 1)
Quarter: 2022Q1

REPORT INFORMATION
  Report Type: Spontaneous
  Country: US (occurrence: US)
  Receive Date: 20220309
  Receipt Date: 20220309
  Transmission Date: 20220423
  Serious: Yes (Death, Life-Threatening, Other)
  Sender: FDA-Public Use
  Company Number: US-BAYER-2020-246321

PATIENT
  Age: 30 Year
  Sex: Male

DRUGS (7)
  1. FENTANYL CITRATE [Interacting]
     Active Substance: FENTANYL CITRATE
     Indication: Product used for unknown indication
  2. LORAZEPAM [Interacting]
     Active Substance: LORAZEPAM
     Indication: Product used for unknown indication
  3. ALPRAZOLAM [Interacting]
     Active Substance: ALPRAZOLAM
     Indication: Product used for unknown indication
  4. ETIZOLAM [Interacting]
     Active Substance: ETIZOLAM
     Indication: Product used for unknown indication
  5. DELORAZEPAM [Interacting]
     Active Substance: DELORAZEPAM
     Indication: Product used for unknown indication
  6. FLUALPRAZOLAM [Interacting]
     Active Substance: FLUALPRAZOLAM
     Indication: Product used for unknown indication
  7. LAMOTRIGINE [Concomitant]
     Active Substance: LAMOTRIGINE
     Indication: Product used for unknown indication

REACTIONS (3)
  - Respiratory depression [Fatal]
  - Drug interaction [Fatal]
  - Toxicity to various agents [Fatal]

NARRATIVE: CASE EVENT DATE: 20190901
